FAERS Safety Report 5671773-5 (Version None)
Quarter: 2008Q2

REPORT INFORMATION
  Report Type: 
  Country: None (occurrence: None)
  Receive Date: 20080227
  Receipt Date: 20070710
  Transmission Date: 20081010
  Serious: Yes (Other)
  Sender: FDA-Public Use
  Company Number: HQWYE024912JUL07

PATIENT
  Age: 51 Year
  Sex: Male
  Weight: 83.99 kg

DRUGS (5)
  1. EFFEXOR [Suspect]
     Indication: DEPRESSION
     Dosage: 300 MG 1 PER 1 DAY, ORAL
     Route: 048
     Dates: start: 20030101
  2. CLONOPIN [Suspect]
     Dosage: ^DECREASE IN THE DOSE^
  3. XANAX [Suspect]
     Dosage: 4 A DAY, DECREASE IN THE DOSE
  4. CELEBREX [Concomitant]
  5. OXYCODONE HCL [Concomitant]

REACTIONS (1)
  - BLOOD PRESSURE FLUCTUATION [None]
